FAERS Safety Report 17087497 (Version 8)
Quarter: 2022Q1

REPORT INFORMATION
  Report Type: Report from Study
  Country: US (occurrence: US)
  Receive Date: 20191128
  Receipt Date: 20220128
  Transmission Date: 20220424
  Serious: Yes (Hospitalization, Other)
  Sender: FDA-Public Use
  Company Number: US-ABBVIE-19K-163-2982939-00

PATIENT
  Sex: Female
  Weight: 47.670 kg

DRUGS (16)
  1. DUOPA [Suspect]
     Active Substance: CARBIDOPA\LEVODOPA
     Indication: Parkinson^s disease
     Route: 050
     Dates: start: 20191010, end: 201910
  2. DUOPA [Suspect]
     Active Substance: CARBIDOPA\LEVODOPA
     Route: 050
     Dates: start: 20191018, end: 201910
  3. DUOPA [Suspect]
     Active Substance: CARBIDOPA\LEVODOPA
     Route: 050
     Dates: start: 201910, end: 201910
  4. DUOPA [Suspect]
     Active Substance: CARBIDOPA\LEVODOPA
     Route: 050
     Dates: start: 20191022
  5. DUOPA [Suspect]
     Active Substance: CARBIDOPA\LEVODOPA
     Route: 050
  6. DUOPA [Suspect]
     Active Substance: CARBIDOPA\LEVODOPA
     Route: 050
  7. IBUPROFEN [Concomitant]
     Active Substance: IBUPROFEN
     Indication: Pain
     Route: 048
  8. AMANTADINE [Concomitant]
     Active Substance: AMANTADINE
     Indication: Parkinson^s disease
     Route: 048
  9. ROPINIROLE [Concomitant]
     Active Substance: ROPINIROLE
     Indication: Parkinson^s disease
     Route: 048
  10. METOPROLOL [Concomitant]
     Active Substance: METOPROLOL
     Indication: Hypertension
     Route: 048
  11. QUETIAPINE [Concomitant]
     Active Substance: QUETIAPINE
     Indication: Parkinson^s disease
     Route: 048
  12. QUETIAPINE [Concomitant]
     Active Substance: QUETIAPINE
     Indication: Sleep disorder
  13. VITAMIN D3 [Concomitant]
     Active Substance: CHOLECALCIFEROL
     Indication: Supplementation therapy
  14. GABAPENTIN [Concomitant]
     Active Substance: GABAPENTIN
     Indication: Parkinson^s disease
     Route: 048
  15. CARBIDOPA\LEVODOPA [Concomitant]
     Active Substance: CARBIDOPA\LEVODOPA
     Indication: Parkinson^s disease
     Route: 048
  16. PANTOPRAZOLE [Concomitant]
     Active Substance: PANTOPRAZOLE
     Indication: Product used for unknown indication
     Route: 048

REACTIONS (47)
  - Sciatica [Unknown]
  - Scoliosis [Not Recovered/Not Resolved]
  - Medical procedure [Unknown]
  - Pain [Unknown]
  - Medical device pain [Unknown]
  - Medical device site mass [Recovered/Resolved]
  - Mass [Unknown]
  - Muscle tightness [Recovering/Resolving]
  - Kyphosis [Not Recovered/Not Resolved]
  - Wrong technique in device usage process [Recovered/Resolved]
  - Posture abnormal [Not Recovered/Not Resolved]
  - Skin laceration [Unknown]
  - Camptocormia [Unknown]
  - Neoplasm skin [Recovered/Resolved]
  - Back disorder [Not Recovered/Not Resolved]
  - Medical device site papule [Not Recovered/Not Resolved]
  - Pain in extremity [Recovered/Resolved]
  - Back pain [Recovered/Resolved]
  - Tremor [Recovering/Resolving]
  - Arthralgia [Recovered/Resolved]
  - Fall [Recovering/Resolving]
  - Paraesthesia [Recovering/Resolving]
  - Gait disturbance [Unknown]
  - Gastritis [Unknown]
  - Pain [Unknown]
  - Stoma site discharge [Recovered/Resolved]
  - Stoma site erythema [Recovered/Resolved]
  - Stoma site infection [Recovering/Resolving]
  - Stoma site infection [Recovered/Resolved]
  - Stoma site erythema [Recovered/Resolved]
  - Stoma site haemorrhage [Not Recovered/Not Resolved]
  - Stoma site infection [Recovering/Resolving]
  - Stoma site pain [Recovered/Resolved]
  - Stoma complication [Recovering/Resolving]
  - Stoma site haemorrhage [Recovered/Resolved]
  - Stoma site pain [Recovered/Resolved]
  - Stoma site discharge [Recovering/Resolving]
  - Stoma site pain [Recovered/Resolved]
  - Stoma site pain [Unknown]
  - Stoma site haemorrhage [Recovered/Resolved]
  - Stoma site discharge [Unknown]
  - Device breakage [Unknown]
  - Device occlusion [Unknown]
  - Parkinson^s disease [Unknown]
  - Speech disorder [Unknown]
  - Anal incontinence [Unknown]
  - Urinary incontinence [Unknown]

NARRATIVE: CASE EVENT DATE: 20190101
